FAERS Safety Report 10012755 (Version 2)
Quarter: 2014Q1

REPORT INFORMATION
  Report Type: Report from Study
  Country: US (occurrence: US)
  Receive Date: 20140314
  Receipt Date: 20140314
  Transmission Date: 20141002
  Serious: Yes (Hospitalization, Other)
  Sender: FDA-Public Use
  Company Number: US-ACTELION-A-US2013-89219

PATIENT
  Age: 62 Year
  Sex: Male

DRUGS (1)
  1. TRACLEER [Suspect]
     Indication: PULMONARY ARTERIAL HYPERTENSION
     Dosage: UNK
     Route: 048
     Dates: start: 2010

REACTIONS (5)
  - Cardiac arrest [Unknown]
  - Dyspnoea [Unknown]
  - Hip arthroplasty [Unknown]
  - Treatment noncompliance [Unknown]
  - Arthritis [Unknown]
